FAERS Safety Report 9321077 (Version 1)
Quarter: 2013Q2

REPORT INFORMATION
  Report Type: Spontaneous
  Country: US (occurrence: None)
  Receive Date: 20130530
  Receipt Date: 20130530
  Transmission Date: 20140414
  Serious: Yes (Hospitalization)
  Sender: FDA-Public Use
  Company Number: None

PATIENT
  Age: 66 Year
  Sex: Male
  Weight: 92 kg

DRUGS (1)
  1. PROPAFENONE [Suspect]
     Indication: ATRIAL FIBRILLATION
     Dosage: 225 MG TID PO
     Route: 048
     Dates: start: 20090217, end: 20121213

REACTIONS (3)
  - Palpitations [None]
  - Tachycardia [None]
  - Electrocardiogram abnormal [None]
